FAERS Safety Report 7138422-0 (Version None)
Quarter: 2010Q4

REPORT INFORMATION
  Report Type: 
  Country: None (occurrence: None)
  Receive Date: 20101110
  Receipt Date: 20101027
  Transmission Date: 20110411
  Serious: Yes (Hospitalization)
  Sender: FDA-Public Use
  Company Number: 2010026565

PATIENT
  Sex: Female
  Weight: 42.6381 kg

DRUGS (6)
  1. HIZENTRA [Suspect]
     Indication: IMMUNODEFICIENCY COMMON VARIABLE
     Dosage: SEE IMAGE
     Route: 058
     Dates: start: 20100913, end: 20100913
  2. HIZENTRA [Suspect]
  3. SOLU-MEDROL [Concomitant]
  4. RITUXIN (RITUXIMAB) [Concomitant]
  5. CYCLOSPORINE [Concomitant]
  6. AMPHOTERICIN B [Concomitant]

REACTIONS (8)
  - ABDOMINAL DISCOMFORT [None]
  - ARTHRALGIA [None]
  - BACK PAIN [None]
  - BLOOD IMMUNOGLOBULIN G INCREASED [None]
  - BONE MARROW DISORDER [None]
  - PLATELET COUNT DECREASED [None]
  - PYREXIA [None]
  - WHITE BLOOD CELL COUNT DECREASED [None]
